FAERS Safety Report 22012584 (Version 1)
Quarter: 2023Q1

REPORT INFORMATION
  Report Type: Spontaneous
  Country: US (occurrence: US)
  Receive Date: 20230220
  Receipt Date: 20230220
  Transmission Date: 20230418
  Serious: No
  Sender: FDA-Public Use
  Company Number: US-AURINIA PHARMACEUTICALS INC.-AUR-002716

PATIENT
  Age: 37 Year
  Sex: Female

DRUGS (3)
  1. LUPKYNIS [Suspect]
     Active Substance: VOCLOSPORIN
     Indication: Product used for unknown indication
     Dosage: 23.7 MILLIGRAM, BID
     Route: 048
     Dates: start: 20220707
  2. PREDNISONE [Suspect]
     Active Substance: PREDNISONE
     Indication: Product used for unknown indication
     Dosage: TAPER
     Dates: end: 202212
  3. LOSARTAN [Concomitant]
     Active Substance: LOSARTAN
     Indication: Product used for unknown indication

REACTIONS (7)
  - Heart rate increased [Unknown]
  - Bronchitis [Unknown]
  - Sinusitis [Unknown]
  - Myositis [Unknown]
  - Palpitations [Unknown]
  - Hypertension [Unknown]
  - Glomerular filtration rate decreased [Unknown]

NARRATIVE: CASE EVENT DATE: 20221201
